FAERS Safety Report 8534420-0 (Version None)
Quarter: 2012Q3

REPORT INFORMATION
  Report Type: 
  Country: None (occurrence: None)
  Receive Date: 20120724
  Receipt Date: 20120720
  Transmission Date: 20120928
  Serious: Yes (Other)
  Sender: FDA-Public Use
  Company Number: PHHY2012DE059930

PATIENT
  Age: 72 Year
  Sex: Male
  Weight: 65 kg

DRUGS (3)
  1. TASIGNA [Suspect]
     Indication: CHRONIC MYELOID LEUKAEMIA
     Dosage: 600 MG DAILY
     Route: 048
     Dates: start: 20120430, end: 20120704
  2. PENTAERYTHRITOL TETRANITRATE [Concomitant]
     Indication: CORONARY ARTERY DISEASE
     Dosage: 50 MG, DAILY
     Dates: start: 20101022
  3. NITROGLYCERIN [Concomitant]
     Indication: CARDIOVASCULAR DISORDER
     Dosage: WHEN NEEDED: 1 PUFF
     Dates: start: 20101022

REACTIONS (1)
  - ELECTROCARDIOGRAM QT PROLONGED [None]
